FAERS Safety Report 9347894 (Version 4)
Quarter: 2013Q4

REPORT INFORMATION
  Report Type: Spontaneous
  Country: US (occurrence: US)
  Receive Date: 20130614
  Receipt Date: 20131220
  Transmission Date: 20140711
  Serious: Yes (Life-Threatening, Hospitalization, Other)
  Sender: FDA-Public Use
  Company Number: US-009507513-1306USA004526

PATIENT
  Age: 60 Year
  Sex: Male
  Weight: 75.28 kg

DRUGS (3)
  1. REBETOL [Suspect]
     Indication: HEPATITIS C
     Dosage: UNK
     Route: 048
     Dates: start: 20130424, end: 20130713
  2. PEG-INTRON [Suspect]
     Indication: HEPATITIS C
     Dosage: 120 MICROGRAM, QW
     Route: 058
     Dates: start: 20130424, end: 20130713
  3. TELAPREVIR [Suspect]
     Indication: HEPATITIS C
     Dosage: UNK
     Dates: start: 20130607, end: 20130713

REACTIONS (14)
  - Liver injury [Recovered/Resolved]
  - Ascites [Recovered/Resolved]
  - Peritonitis bacterial [Recovered/Resolved]
  - Jaundice [Recovered/Resolved]
  - Oesophageal varices haemorrhage [Recovered/Resolved]
  - Hepatic cirrhosis [Recovered/Resolved]
  - Generalised oedema [Recovered/Resolved]
  - Pancytopenia [Recovered/Resolved]
  - Fatigue [Recovered/Resolved]
  - Malnutrition [Recovered/Resolved]
  - Asthenia [Recovered/Resolved]
  - Anaemia [Recovered/Resolved]
  - Pyrexia [Unknown]
  - Headache [Unknown]
